FAERS Safety Report 25509289 (Version 1)
Quarter: 2025Q3

REPORT INFORMATION
  Report Type: Spontaneous
  Country: US (occurrence: None)
  Receive Date: 20250702
  Receipt Date: 20250702
  Transmission Date: 20251020
  Serious: Yes (Hospitalization)
  Sender: FDA-CTU
  Company Number: None

PATIENT
  Age: 71 Year
  Sex: Female

DRUGS (1)
  1. POMALYST [Suspect]
     Active Substance: POMALIDOMIDE
     Indication: Plasma cell myeloma
     Dosage: 3MG QD ORAL
     Route: 048
     Dates: start: 20220810

REACTIONS (8)
  - Cardiac failure congestive [None]
  - Chronic obstructive pulmonary disease [None]
  - Pneumonia [None]
  - Pulmonary embolism [None]
  - Anaemia [None]
  - Pneumothorax [None]
  - Ascites [None]
  - Pleural effusion [None]

NARRATIVE: CASE EVENT DATE: 20250622
